FAERS Safety Report 21158044 (Version 2)
Quarter: 2022Q3

REPORT INFORMATION
  Report Type: Spontaneous
  Country: US (occurrence: US)
  Receive Date: 20220801
  Receipt Date: 20220914
  Transmission Date: 20221026
  Serious: No
  Sender: FDA-Public Use
  Company Number: US-BRISTOL-MYERS SQUIBB COMPANY-2022-082956

PATIENT
  Age: 82 Year
  Sex: Female
  Weight: 89.4 kg

DRUGS (2)
  1. REVLIMID [Suspect]
     Active Substance: LENALIDOMIDE
     Indication: Diffuse large B-cell lymphoma
     Dosage: FREQUENCY: 1 DAILY FOR 21 DAYS, 7 DAYS OFF
     Route: 048
  2. REVLIMID [Suspect]
     Active Substance: LENALIDOMIDE
     Dosage: FREQ : ONCE DAILY FOR 2 WEEKS ON AND 2 WEEKS OFF
     Route: 065

REACTIONS (4)
  - Platelet disorder [Unknown]
  - Platelet count decreased [Unknown]
  - Intentional product use issue [Unknown]
  - Blood potassium decreased [Unknown]
